FAERS Safety Report 6309058-6 (Version None)
Quarter: 2009Q3

REPORT INFORMATION
  Report Type: 
  Country: None (occurrence: None)
  Receive Date: 20090814
  Receipt Date: 20090810
  Transmission Date: 20100115
  Serious: Yes (Hospitalization)
  Sender: FDA-Public Use
  Company Number: US-BIOGENIDEC-2009BI023492

PATIENT
  Sex: Female

DRUGS (4)
  1. AVONEX [Suspect]
     Indication: MULTIPLE SCLEROSIS
     Route: 030
     Dates: start: 20071015
  2. SOLU-MEDROL [Concomitant]
     Indication: PROPHYLAXIS
  3. NEURONTIN [Concomitant]
  4. BACLOFEN [Concomitant]

REACTIONS (3)
  - ASTHENIA [None]
  - DYSAESTHESIA [None]
  - URINARY TRACT INFECTION [None]
